FAERS Safety Report 7618916-1 (Version None)
Quarter: 2011Q3

REPORT INFORMATION
  Report Type: 
  Country: None (occurrence: None)
  Receive Date: 20110718
  Receipt Date: 20110711
  Transmission Date: 20111222
  Serious: Yes (Death)
  Sender: FDA-Public Use
  Company Number: ES-GENZYME-FLUD-1001279

PATIENT

DRUGS (11)
  1. CYCLOPHOSPHAMIDE [Suspect]
     Dosage: 250 MG/M2, QD, DAYS 1-3
     Route: 042
  2. CYCLOPHOSPHAMIDE [Suspect]
     Dosage: 250 MG/M2, QD, DAYS 1-3
     Route: 042
  3. ACYCLOVIR [Concomitant]
     Indication: INFECTION PROPHYLAXIS
     Dosage: UNK, UNTIL CD4 POSITIVE LYMPHOCYTE REACHED 0.3X10E9/L
     Route: 065
  4. FLUDARA [Suspect]
     Dosage: 25 MG/M2, QD ON DAYS 1-3
     Route: 042
  5. FLUDARA [Suspect]
     Dosage: 25 MG/M2, QD ON DAYS 1-3
     Route: 042
  6. RITUXIMAB [Suspect]
     Indication: CHRONIC LYMPHOCYTIC LEUKAEMIA
     Dosage: 375 MG/M2, QD, DAYS 1-3, CYCLE 1
     Route: 042
  7. CYCLOPHOSPHAMIDE [Suspect]
     Indication: CHRONIC LYMPHOCYTIC LEUKAEMIA
     Dosage: 250 MG/M2, QD, DAYS 1-3
     Route: 042
  8. TRIMETHOPRIM + SULFAMETHOXAZOLE [Concomitant]
     Indication: INFECTION PROPHYLAXIS
     Dosage: UNK, UNTIL CD4 POSITIVE LYMPHOCYTE REACHED 0.3X10E9/L
     Route: 065
  9. FLUDARA [Suspect]
     Indication: CHRONIC LYMPHOCYTIC LEUKAEMIA
     Dosage: 25 MG/M2, QD ON DAYS 1-3
     Route: 042
  10. RITUXIMAB [Suspect]
     Dosage: 500 MG/M2, QD, DAYS 1-3, (CYCLES 2-6)
     Route: 042
  11. RITUXIMAB [Suspect]
     Dosage: 500 MG/M2, QD, DAYS 1-3, (CYCLES 2-6)
     Route: 042

REACTIONS (1)
  - VIRAL MYOCARDITIS [None]
